FAERS Safety Report 20423688 (Version 1)
Quarter: 2022Q1

REPORT INFORMATION
  Report Type: Spontaneous
  Country: US (occurrence: US)
  Receive Date: 20220203
  Receipt Date: 20220203
  Transmission Date: 20220423
  Serious: No
  Sender: FDA-Public Use
  Company Number: US-THE RITEDOSE CORPORATION-2021RIT000259

PATIENT

DRUGS (6)
  1. ALBUTEROL SULFATE [Suspect]
     Active Substance: ALBUTEROL SULFATE
     Indication: Chest pain
     Dosage: 2.35 MG/3ML, TID
     Route: 055
  2. PFIZER-BIONTECH COVID-19 VACCINE [Suspect]
     Active Substance: TOZINAMERAN
     Indication: COVID-19 immunisation
     Dosage: UNK
     Dates: start: 20210326, end: 20210420
  3. BENADRYL                           /00000402/ [Concomitant]
     Indication: Chest pain
     Dosage: 12.5 MG, UNK
     Route: 048
  4. ZITHROMAX [Concomitant]
     Active Substance: AZITHROMYCIN DIHYDRATE
     Indication: Chest pain
     Dosage: UNK
  5. PREDNISONE [Concomitant]
     Active Substance: PREDNISONE
     Indication: Chest pain
     Dosage: 5 MG, 21 TABLETS FOR 6 DAYS
  6. BUDESONIDE [Concomitant]
     Active Substance: BUDESONIDE
     Indication: Chest pain
     Dosage: 0.5 MG, UNK
     Route: 055

REACTIONS (7)
  - Chest pain [Unknown]
  - Lethargy [Unknown]
  - Discomfort [Unknown]
  - Dyspnoea [Unknown]
  - Cough [Unknown]
  - Dizziness [Unknown]
  - Heart rate increased [Unknown]

NARRATIVE: CASE EVENT DATE: 20210301
